FAERS Safety Report 11944748 (Version 1)
Quarter: 2016Q1

REPORT INFORMATION
  Report Type: Spontaneous
  Country: US (occurrence: US)
  Receive Date: 20160125
  Receipt Date: 20160125
  Transmission Date: 20160526
  Serious: Yes (Other)
  Sender: FDA-Public Use
  Company Number: US-ALIMERA SCIENCES, INC.-1046855

PATIENT
  Age: 75 Year
  Sex: Male

DRUGS (2)
  1. ILUVIEN [Suspect]
     Active Substance: FLUOCINOLONE ACETONIDE
     Indication: DIABETIC RETINAL OEDEMA
     Dates: start: 20150903
  2. OZURDEX [Concomitant]
     Active Substance: DEXAMETHASONE
     Dates: start: 20150514

REACTIONS (2)
  - Retinal detachment [None]
  - Retinal tear [None]

NARRATIVE: CASE EVENT DATE: 20160107
